FAERS Safety Report 9257000 (Version 1)
Quarter: 2013Q2

REPORT INFORMATION
  Report Type: Spontaneous
  Country: US (occurrence: US)
  Receive Date: 20130426
  Receipt Date: 20130426
  Transmission Date: 20140414
  Serious: Yes (Other)
  Sender: FDA-Public Use
  Company Number: US-ELI_LILLY_AND_COMPANY-US201304006560

PATIENT
  Sex: 0

DRUGS (1)
  1. CYMBALTA [Suspect]

REACTIONS (5)
  - Parkinson^s disease [Unknown]
  - Tremor [Unknown]
  - Neck pain [Unknown]
  - Back pain [Unknown]
  - Memory impairment [Unknown]
